FAERS Safety Report 25488114 (Version 1)
Quarter: 2025Q2

REPORT INFORMATION
  Report Type: Spontaneous
  Country: US (occurrence: US)
  Receive Date: 20250627
  Receipt Date: 20250627
  Transmission Date: 20250717
  Serious: No
  Sender: VERTEX
  Company Number: US-VERTEX PHARMACEUTICALS-2025-010042

PATIENT
  Age: 44 Year
  Sex: Female

DRUGS (2)
  1. JOURNAVX [Suspect]
     Active Substance: SUZETRIGINE
     Indication: Product used for unknown indication
     Route: 048
     Dates: start: 2025, end: 2025
  2. JOURNAVX [Suspect]
     Active Substance: SUZETRIGINE
     Dosage: 1 DOSAGE FORM, BID
     Route: 048
     Dates: start: 2025

REACTIONS (2)
  - Vision blurred [Unknown]
  - Insomnia [Unknown]

NARRATIVE: CASE EVENT DATE: 20250101
